FAERS Safety Report 7789956-7 (Version None)
Quarter: 2011Q3

REPORT INFORMATION
  Report Type: 
  Country: None (occurrence: None)
  Receive Date: 20110930
  Receipt Date: 20101221
  Transmission Date: 20111222
  Serious: No
  Sender: FDA-Public Use
  Company Number: US-ASTRAZENECA-2010SE41259

PATIENT
  Age: 77 Year
  Sex: Female

DRUGS (4)
  1. NEXIUM [Suspect]
     Route: 048
  2. CRESTOR [Suspect]
     Route: 048
  3. ANTIBIOTIC [Suspect]
     Route: 065
  4. ARIMIDEX [Suspect]
     Route: 048

REACTIONS (3)
  - FEELING ABNORMAL [None]
  - TREMOR [None]
  - FATIGUE [None]
